FAERS Safety Report 8598649-8 (Version None)
Quarter: 2012Q3

REPORT INFORMATION
  Report Type: 
  Country: None (occurrence: None)
  Receive Date: 20120803
  Receipt Date: 20120717
  Transmission Date: 20120928
  Serious: Yes (Death, Hospitalization, Other)
  Sender: FDA-Public Use
  Company Number: ADR-2012-01405

PATIENT
  Sex: Male

DRUGS (5)
  1. BACLOFEN [Suspect]
     Indication: SPINAL CORD INJURY
     Dosage: 480.2 M0G/DAY
  2. BACLOFEN [Suspect]
     Indication: SPINAL CORD DISORDER
     Dosage: 480.2 M0G/DAY
  3. ALPRAZOLAM [Concomitant]
  4. ASPIRIN [Concomitant]
  5. DOCUSATE [Concomitant]

REACTIONS (5)
  - CARDIAC ARREST [None]
  - PULSE ABSENT [None]
  - DRUG ABUSE [None]
  - TOXICITY TO VARIOUS AGENTS [None]
  - ACCIDENTAL POISONING [None]
